FAERS Safety Report 11272077 (Version 1)
Quarter: 2015Q3

REPORT INFORMATION
  Report Type: Spontaneous
  Country: AU (occurrence: AU)
  Receive Date: 20150715
  Receipt Date: 20150715
  Transmission Date: 20151125
  Serious: Yes (Other)
  Sender: FDA-Public Use
  Company Number: PHHY2015AU061642

PATIENT
  Age: 54 Year
  Sex: Female
  Weight: 98 kg

DRUGS (3)
  1. AFINITOR [Suspect]
     Active Substance: EVEROLIMUS
     Indication: BREAST CANCER
     Dosage: 10 MG, QD
     Route: 048
  2. EXEMESTANE. [Suspect]
     Active Substance: EXEMESTANE
     Indication: BREAST CANCER METASTATIC
     Route: 065
  3. AFINITOR [Suspect]
     Active Substance: EVEROLIMUS
     Dosage: 05 MG, QD
     Route: 048
     Dates: start: 20150226

REACTIONS (2)
  - Rash [Recovering/Resolving]
  - Lymphoedema [Recovering/Resolving]

NARRATIVE: CASE EVENT DATE: 20150218
